FAERS Safety Report 4318339-7 (Version None)
Quarter: 2004Q1

REPORT INFORMATION
  Report Type: 
  Country: None (occurrence: None)
  Receive Date: 20040315
  Receipt Date: 20031211
  Transmission Date: 20041129
  Serious: No
  Sender: FDA-Public Use
  Company Number: 2003190074US

PATIENT
  Sex: Female

DRUGS (1)
  1. BEXTRA [Suspect]
     Dosage: 20 MG, ORAL
     Route: 048

REACTIONS (2)
  - DISCOMFORT [None]
  - MEDICATION ERROR [None]
